FAERS Safety Report 22046623 (Version 1)
Quarter: 2023Q1

REPORT INFORMATION
  Report Type: Spontaneous
  Country: US (occurrence: US)
  Receive Date: 20230228
  Receipt Date: 20230228
  Transmission Date: 20230418
  Serious: Yes (Other)
  Sender: FDA-Public Use
  Company Number: US-NOVOPROD-1023213

PATIENT
  Sex: Male

DRUGS (2)
  1. OZEMPIC [Suspect]
     Active Substance: SEMAGLUTIDE
     Dosage: 1 MG, QW
     Route: 058
  2. OZEMPIC [Suspect]
     Active Substance: SEMAGLUTIDE
     Indication: Type 2 diabetes mellitus
     Dosage: 0.5 MG, QW
     Route: 058
     Dates: start: 2022

REACTIONS (8)
  - Ocular hyperaemia [Not Recovered/Not Resolved]
  - Conjunctivitis [Unknown]
  - Eye swelling [Not Recovered/Not Resolved]
  - Swelling face [Unknown]
  - Headache [Unknown]
  - Drug hypersensitivity [Unknown]
  - Astigmatism [Unknown]
  - Off label use [Unknown]

NARRATIVE: CASE EVENT DATE: 20220101
